FAERS Safety Report 10233657 (Version 1)
Quarter: 2014Q2

REPORT INFORMATION
  Report Type: Spontaneous
  Country: AU (occurrence: AU)
  Receive Date: 20140612
  Receipt Date: 20140612
  Transmission Date: 20141212
  Serious: Yes (Hospitalization, Other)
  Sender: FDA-Public Use
  Company Number: AU-ACTAVIS-2014-13006

PATIENT
  Age: 37 Year
  Sex: Female

DRUGS (3)
  1. CARBAMAZEPINE (UNKNOWN) [Suspect]
     Indication: PAIN
     Dosage: 200 MG, BID
     Route: 048
  2. INDOMETHACIN                       /00003801/ [Concomitant]
     Indication: PAIN
     Dosage: 100 MG, BID
     Route: 065
  3. PARACETAMOL CODEINE [Concomitant]
     Indication: PAIN
     Dosage: UNK
     Route: 065

REACTIONS (1)
  - Toxic epidermal necrolysis [Recovered/Resolved]
